FAERS Safety Report 8916220 (Version 1)
Quarter: 2012Q4

REPORT INFORMATION
  Report Type: 
  Country: US (occurrence: US)
  Receive Date: 20121120
  Receipt Date: 20121120
  Transmission Date: 20130627
  Serious: Yes (Other)
  Sender: FDA-Public Use
  Company Number: US-ELI_LILLY_AND_COMPANY-US201211002426

PATIENT
  Age: 68 Year
  Sex: Female

DRUGS (3)
  1. CYMBALTA [Suspect]
     Indication: MAJOR DEPRESSION
     Dosage: 60 mg, qd
     Dates: start: 2007, end: 2009
  2. CYMBALTA [Suspect]
     Dosage: 30 mg, qd
     Dates: start: 201109
  3. CYMBALTA [Suspect]
     Dosage: 60 mg, qd
     Dates: start: 201109, end: 201206

REACTIONS (2)
  - Epidermal necrosis [Unknown]
  - Rash [Recovered/Resolved]
